FAERS Safety Report 8040469-7 (Version None)
Quarter: 2012Q1

REPORT INFORMATION
  Report Type: 
  Country: None (occurrence: None)
  Receive Date: 20120111
  Receipt Date: 20111230
  Transmission Date: 20120608
  Serious: No
  Sender: FDA-Public Use
  Company Number: US-AMGEN-USASP2011069707

PATIENT
  Age: 61 Year
  Sex: Male

DRUGS (2)
  1. SULFASALAZINE [Concomitant]
     Dosage: 1 MG, QD
     Dates: start: 20111101
  2. ENBREL [Suspect]
     Indication: RHEUMATOID ARTHRITIS
     Dosage: 50 MG, QWK
     Dates: start: 20111005

REACTIONS (1)
  - LIVER FUNCTION TEST ABNORMAL [None]
